FAERS Safety Report 24276287 (Version 1)
Quarter: 2024Q3

REPORT INFORMATION
  Report Type: Spontaneous
  Country: IN (occurrence: IN)
  Receive Date: 20240903
  Receipt Date: 20240903
  Transmission Date: 20241016
  Serious: Yes (Other)
  Sender: Carnegie Pharmaceuticals
  Company Number: IN-CARNEGIE-000022

PATIENT
  Age: 76 Year
  Sex: Male

DRUGS (1)
  1. LATANOPROST [Suspect]
     Active Substance: LATANOPROST
     Indication: Open angle glaucoma
     Route: 065

REACTIONS (2)
  - Corneal endotheliitis [Recovered/Resolved]
  - Ophthalmic herpes simplex [Recovered/Resolved]
